FAERS Safety Report 5861392-X (Version None)
Quarter: 2008Q3

REPORT INFORMATION
  Report Type: 
  Country: None (occurrence: None)
  Receive Date: 20080827
  Receipt Date: 20080421
  Transmission Date: 20090109
  Serious: No
  Sender: FDA-Public Use
  Company Number: US-ABBOTT-08P-163-0448406-00

PATIENT
  Sex: Female
  Weight: 86.26 kg

DRUGS (9)
  1. COATED PDS [Suspect]
     Indication: BLOOD CHOLESTEROL INCREASED
     Route: 048
     Dates: start: 20080415, end: 20080416
  2. AMLODIPINE [Concomitant]
     Indication: HYPERTENSION
     Route: 048
     Dates: start: 20060101
  3. LEVOTHYROXINE SODIUM [Concomitant]
     Indication: BLOOD THYROID STIMULATING HORMONE DECREASED
     Route: 048
  4. LEVOTHYROXINE SODIUM [Concomitant]
     Indication: CHEMOTHERAPY
  5. LETROZOLE [Concomitant]
     Indication: NEOPLASM MALIGNANT
     Route: 048
  6. VALSARTAN [Concomitant]
     Indication: HYPERTENSION
     Route: 048
  7. IBUPROFEN [Concomitant]
     Indication: BONE PAIN
     Route: 048
  8. ADVIL PM [Concomitant]
     Indication: FIBROMYALGIA
     Route: 048
  9. ADVIL PM [Concomitant]
     Indication: SLEEP DISORDER

REACTIONS (3)
  - BURNING SENSATION [None]
  - PRURITUS [None]
  - RASH [None]
